FAERS Safety Report 7417428-8 (Version None)
Quarter: 2011Q2

REPORT INFORMATION
  Report Type: 
  Country: None (occurrence: None)
  Receive Date: 20110408
  Receipt Date: 20110331
  Transmission Date: 20111010
  Serious: Yes (Hospitalization)
  Sender: FDA-Public Use
  Company Number: 878409

PATIENT
  Age: 61 Year
  Sex: Female

DRUGS (9)
  1. LEVOFLOXACIN [Suspect]
     Indication: ANTIBIOTIC THERAPY
  2. ETOPOSIDE [Suspect]
     Indication: MANTLE CELL LYMPHOMA STAGE IV
  3. (FLUCONAZOLE) [Concomitant]
  4. (MELPHALAN) [Suspect]
     Indication: MANTLE CELL LYMPHOMA STAGE IV
  5. (WARFARIN) [Concomitant]
  6. CARMUSTINE [Suspect]
     Indication: MANTLE CELL LYMPHOMA STAGE IV
  7. CYTARABINE [Suspect]
     Indication: MANTLE CELL LYMPHOMA STAGE IV
  8. (ACICLOVIR) [Concomitant]
  9. (VITAMINS /90003601/) [Concomitant]

REACTIONS (3)
  - DRUG HYPERSENSITIVITY [None]
  - PANCYTOPENIA [None]
  - FEBRILE NEUTROPENIA [None]
